FAERS Safety Report 6174959-9 (Version None)
Quarter: 2009Q2

REPORT INFORMATION
  Report Type: 
  Country: None (occurrence: None)
  Receive Date: 20090430
  Receipt Date: 20081027
  Transmission Date: 20091009
  Serious: No
  Sender: FDA-Public Use
  Company Number: US-ASTRAZENECA-2008UW24025

PATIENT
  Age: 86 Year
  Sex: Female

DRUGS (4)
  1. NEXIUM [Suspect]
     Indication: GASTROOESOPHAGEAL REFLUX DISEASE
     Route: 048
  2. NEXIUM [Suspect]
     Indication: DYSPEPSIA
     Route: 048
  3. VITAMINS [Concomitant]
  4. MYCARDIS [Concomitant]

REACTIONS (3)
  - OESOPHAGEAL DISCOMFORT [None]
  - PRURITUS [None]
  - RASH [None]
